FAERS Safety Report 19112956 (Version 1)
Quarter: 2021Q2

REPORT INFORMATION
  Report Type: Spontaneous
  Country: US (occurrence: US)
  Receive Date: 20210409
  Receipt Date: 20210409
  Transmission Date: 20210717
  Serious: No
  Sender: FDA-Public Use
  Company Number: US-ALLERGAN-2045783US

PATIENT
  Sex: Female

DRUGS (1)
  1. LILETTA [Suspect]
     Active Substance: LEVONORGESTREL
     Indication: CONTRACEPTION
     Dosage: 52 MG, SINGLE
     Route: 015

REACTIONS (11)
  - Pollakiuria [Unknown]
  - Abdominal distension [Unknown]
  - Stress urinary incontinence [Unknown]
  - Intermenstrual bleeding [Unknown]
  - Urine abnormality [Recovered/Resolved]
  - Fungal infection [Unknown]
  - Abdominal pain lower [Unknown]
  - Pelvic pain [Unknown]
  - Headache [Unknown]
  - Urinary tract infection [Unknown]
  - Vulvovaginal discomfort [Unknown]
